FAERS Safety Report 6215718-8 (Version None)
Quarter: 2009Q2

REPORT INFORMATION
  Report Type: 
  Country: None (occurrence: None)
  Receive Date: 20090603
  Receipt Date: 20090603
  Transmission Date: 20091009
  Serious: No
  Sender: FDA-Public Use
  Company Number: None

PATIENT
  Age: 49 Year
  Sex: Female
  Weight: 166.0165 kg

DRUGS (2)
  1. ISONIAZID [Suspect]
     Indication: TUBERCULOSIS
     Dosage: 300 MG 1 TABLET DAILY
     Dates: start: 20080501, end: 20090215
  2. ISONIAZID [Suspect]

REACTIONS (1)
  - WEIGHT INCREASED [None]
